FAERS Safety Report 6722119-2 (Version None)
Quarter: 2010Q2

REPORT INFORMATION
  Report Type: 
  Country: None (occurrence: None)
  Receive Date: 20100512
  Receipt Date: 20100428
  Transmission Date: 20101027
  Serious: Yes (Hospitalization)
  Sender: FDA-Public Use
  Company Number: US-ELI_LILLY_AND_COMPANY-US201004008507

PATIENT
  Age: 82 Year
  Sex: Female

DRUGS (9)
  1. FORTEO [Suspect]
     Indication: OSTEOPOROSIS
     Dosage: 20 UG, DAILY (1/D)
  2. ASPIRIN [Concomitant]
  3. PULMICORT [Concomitant]
  4. HEPARIN [Concomitant]
  5. DUONEB [Concomitant]
  6. METAPROTERENOL [Concomitant]
  7. PROTONIX /01263201/ [Concomitant]
  8. PREDNISONE [Concomitant]
  9. SPIRIVA [Concomitant]

REACTIONS (1)
  - RESPIRATORY FAILURE [None]
